FAERS Safety Report 9995736 (Version 1)
Quarter: 2014Q1

REPORT INFORMATION
  Report Type: Spontaneous
  Country: US (occurrence: None)
  Receive Date: 20140310
  Receipt Date: 20140310
  Transmission Date: 20141002
  Serious: Yes (Life-Threatening, Other)
  Sender: FDA-Public Use
  Company Number: None

PATIENT
  Age: 14 Year
  Sex: Male
  Weight: 57.7 kg

DRUGS (3)
  1. REMICADE 5 MG/KG/DOSE JANSSEN RESEARCH AND DEVELOPMENT [Suspect]
     Indication: CROHN^S DISEASE
     Dosage: 5MG/KG/DOSE  EVERY 8 WEEKS  INTRAVENOUS
     Route: 042
     Dates: start: 20120117, end: 20130703
  2. 6-MERCAPTOPURINE [Concomitant]
  3. PENTASA [Concomitant]

REACTIONS (1)
  - Brain neoplasm [None]
